FAERS Safety Report 13519073 (Version 1)
Quarter: 2017Q2

REPORT INFORMATION
  Report Type: Spontaneous
  Country: HR (occurrence: HR)
  Receive Date: 20170505
  Receipt Date: 20170505
  Transmission Date: 20170830
  Serious: Yes (Hospitalization)
  Sender: FDA-Public Use
  Company Number: HR-UNICHEM LABORATORIES LIMITED-UCM201704-000099

PATIENT
  Age: 32 Year
  Sex: Male

DRUGS (3)
  1. ALCOHOL. [Suspect]
     Active Substance: ALCOHOL
  2. ALPRAZOLAM. [Suspect]
     Active Substance: ALPRAZOLAM
  3. QUETIAPINE. [Suspect]
     Active Substance: QUETIAPINE

REACTIONS (7)
  - Toxicity to various agents [Unknown]
  - Myoclonus [Recovered/Resolved]
  - Rhabdomyolysis [Recovered/Resolved]
  - Hypotension [Recovered/Resolved]
  - Intentional overdose [Unknown]
  - Neuroleptic malignant syndrome [Recovered/Resolved]
  - Renal failure [Unknown]
